FAERS Safety Report 4710770-0 (Version None)
Quarter: 2005Q3

REPORT INFORMATION
  Report Type: 
  Country: None (occurrence: None)
  Receive Date: 20050707
  Receipt Date: 20050622
  Transmission Date: 20060218
  Serious: Yes (Hospitalization)
  Sender: FDA-Public Use
  Company Number: JP_050205857

PATIENT
  Age: 67 Year
  Sex: Male

DRUGS (7)
  1. GEMZAR [Suspect]
     Indication: LUNG ADENOCARCINOMA STAGE IV
     Dosage: 1400 MG OTHER
     Dates: start: 20040601
  2. NAVELBINE [Concomitant]
  3. ZOFRAN [Concomitant]
  4. FIRSTCIN (CEFOZOPRAN HYDROCHLORIDE) [Concomitant]
  5. NAIXAN (NAPROXEN SODIUM) [Concomitant]
  6. MUCOSTA (REBAMIPIDE) [Concomitant]
  7. LENDORM [Concomitant]

REACTIONS (3)
  - CONDITION AGGRAVATED [None]
  - GOUT [None]
  - PYREXIA [None]
